FAERS Safety Report 20419774 (Version 2)
Quarter: 2022Q1

REPORT INFORMATION
  Report Type: Spontaneous
  Country: US (occurrence: US)
  Receive Date: 20220203
  Receipt Date: 20220301
  Transmission Date: 20220423
  Serious: No
  Sender: FDA-Public Use
  Company Number: US-EPICPHARMA-US-2022EPCSPO00086

PATIENT
  Age: 67 Year
  Sex: Male

DRUGS (3)
  1. FUROSEMIDE [Suspect]
     Active Substance: FUROSEMIDE
     Indication: Product used for unknown indication
     Route: 065
  2. ENTRESTO [Suspect]
     Active Substance: SACUBITRIL\VALSARTAN
     Indication: Cardiac failure
     Route: 065
     Dates: start: 20210223
  3. CARVEDILOL [Concomitant]
     Active Substance: CARVEDILOL
     Indication: Product used for unknown indication
     Route: 048

REACTIONS (7)
  - Weight decreased [Unknown]
  - Dysphonia [Unknown]
  - Joint injury [Not Recovered/Not Resolved]
  - Hypotension [Recovered/Resolved]
  - Feeling cold [Not Recovered/Not Resolved]
  - Pain [Unknown]
  - Heart rate decreased [Unknown]
